FAERS Safety Report 5792894-2 (Version None)
Quarter: 2008Q2

REPORT INFORMATION
  Report Type: 
  Country: None (occurrence: None)
  Receive Date: 20080626
  Receipt Date: 20080626
  Transmission Date: 20081010
  Serious: No
  Sender: FDA-Public Use
  Company Number: None

PATIENT
  Age: 63 Year
  Sex: Male
  Weight: 112.2 kg

DRUGS (1)
  1. DEMEROL [Suspect]
     Indication: THERAPEUTIC PROCEDURE
     Dates: start: 20080616

REACTIONS (2)
  - INFUSION SITE RASH [None]
  - INFUSION SITE URTICARIA [None]
